FAERS Safety Report 5810910-6 (Version None)
Quarter: 2008Q3

REPORT INFORMATION
  Report Type: 
  Country: None (occurrence: None)
  Receive Date: 20080716
  Receipt Date: 20080704
  Transmission Date: 20090109
  Serious: Yes (Hospitalization)
  Sender: FDA-Public Use
  Company Number: PHHY2008GB06766

PATIENT
  Sex: Male

DRUGS (7)
  1. GLEEVEC [Suspect]
     Dosage: 400MG/DAILY
     Dates: start: 20060301
  2. GLEEVEC [Suspect]
     Dosage: 600MG/DAILY
     Dates: start: 20070301
  3. SIMVASTATIN [Concomitant]
  4. BISOPROLOL FUMARATE [Concomitant]
  5. CLOPIDOGREL [Concomitant]
  6. ASPIRIN [Concomitant]
  7. RAMIPRIL [Concomitant]

REACTIONS (3)
  - CHEST DISCOMFORT [None]
  - DYSPNOEA [None]
  - MYOCARDIAL INFARCTION [None]
